FAERS Safety Report 15574968 (Version 3)
Quarter: 2019Q3

REPORT INFORMATION
  Report Type: Spontaneous
  Country: US (occurrence: US)
  Receive Date: 20181101
  Receipt Date: 20190813
  Transmission Date: 20191004
  Serious: Yes (Other)
  Sender: FDA-Public Use
  Company Number: US-BAYER-2018-200551

PATIENT
  Age: 26 Year
  Sex: Female
  Weight: 47.17 kg

DRUGS (3)
  1. IMITREX DF [Concomitant]
     Active Substance: SUMATRIPTAN SUCCINATE
     Dosage: 100 MG, BID
     Route: 048
  2. MIRENA [Suspect]
     Active Substance: LEVONORGESTREL
     Indication: CONTRACEPTION
     Dosage: 20 MCG/24HR, CONT
     Route: 015
     Dates: start: 20151016, end: 20181019
  3. MIRENA [Suspect]
     Active Substance: LEVONORGESTREL
     Indication: CONTRACEPTION
     Dosage: UNK

REACTIONS (8)
  - Embedded device [Recovered/Resolved]
  - Complication of device removal [Recovered/Resolved]
  - Device issue [Recovered/Resolved]
  - Device use issue [Recovered/Resolved]
  - Migraine [Recovered/Resolved]
  - Device breakage [Recovered/Resolved]
  - Device difficult to use [Recovered/Resolved]
  - Pelvic pain [Recovered/Resolved]

NARRATIVE: CASE EVENT DATE: 2018
